FAERS Safety Report 23737129 (Version 1)
Quarter: 2024Q2

REPORT INFORMATION
  Report Type: Spontaneous
  Country: CA (occurrence: CA)
  Receive Date: 20240412
  Receipt Date: 20240412
  Transmission Date: 20240716
  Serious: Yes (Other)
  Sender: FDA-Public Use
  Company Number: CA-AstraZeneca-2024A082079

PATIENT
  Sex: Female
  Weight: 84 kg

DRUGS (1)
  1. TRASTUZUMAB DERUXTECAN [Suspect]
     Active Substance: TRASTUZUMAB DERUXTECAN
     Indication: HER2 negative breast cancer
     Dosage: 464.2 MG, ONCE EVERY 3 WK
     Route: 042

REACTIONS (4)
  - Angina pectoris [Unknown]
  - Palpitations [Unknown]
  - Paraesthesia [Unknown]
  - Dizziness [Unknown]
